FAERS Safety Report 5306743-X (Version None)
Quarter: 2007Q2

REPORT INFORMATION
  Report Type: 
  Country: None (occurrence: None)
  Receive Date: 20070418
  Receipt Date: 20070405
  Transmission Date: 20071010
  Serious: Yes (Other)
  Sender: FDA-Public Use
  Company Number: GXKR2007NL03222

PATIENT
  Age: 43 Year
  Sex: Male
  Weight: 80 kg

DRUGS (1)
  1. DIAZEPAM [Suspect]
     Indication: MUSCLE SPASMS
     Dosage: 2.5 MG, ORAL
     Route: 048
     Dates: start: 20070226, end: 20070228

REACTIONS (4)
  - FEELING ABNORMAL [None]
  - HALLUCINATION [None]
  - NIGHTMARE [None]
  - PHARMACEUTICAL PRODUCT COMPLAINT [None]
